FAERS Safety Report 15698454 (Version 3)
Quarter: 2018Q4

REPORT INFORMATION
  Report Type: Spontaneous
  Country: FR (occurrence: FR)
  Receive Date: 20181207
  Receipt Date: 20181228
  Transmission Date: 20190205
  Serious: Yes (Life-Threatening, Hospitalization)
  Sender: FDA-Public Use
  Company Number: FR-ASTRAZENECA-2018SF59290

PATIENT
  Age: 702 Month
  Sex: Male

DRUGS (2)
  1. BRILIQUE [Suspect]
     Active Substance: TICAGRELOR
     Indication: MYOCARDIAL INFARCTION
     Route: 048
     Dates: start: 2015, end: 20160201
  2. BRILIQUE [Suspect]
     Active Substance: TICAGRELOR
     Indication: MYOCARDIAL INFARCTION
     Route: 048
     Dates: start: 201811

REACTIONS (4)
  - Right ventricular dysfunction [Not Recovered/Not Resolved]
  - Overdose [Recovered/Resolved]
  - Vascular stent thrombosis [Recovered/Resolved with Sequelae]
  - Product physical issue [Unknown]

NARRATIVE: CASE EVENT DATE: 201811
